FAERS Safety Report 8323256-1 (Version None)
Quarter: 2012Q2

REPORT INFORMATION
  Report Type: 
  Country: None (occurrence: None)
  Receive Date: 20120430
  Receipt Date: 20120419
  Transmission Date: 20120825
  Serious: Yes (Other)
  Sender: FDA-Public Use
  Company Number: CH-FRI-1000030137

PATIENT
  Sex: Female

DRUGS (4)
  1. PANTOPRAZOLE [Concomitant]
     Dosage: 20 MG
     Route: 048
  2. ESCITALOPRAM [Suspect]
     Dosage: 10 MG
     Route: 048
  3. TILUR [Suspect]
     Dosage: 180 MG
     Route: 048
     Dates: start: 20111001, end: 20120129
  4. TRIMETHOPRIM [Suspect]
     Dates: start: 20120120

REACTIONS (3)
  - ANAEMIA [None]
  - COLITIS [None]
  - MELAENA [None]
